FAERS Safety Report 10261504 (Version 1)
Quarter: 2014Q2

REPORT INFORMATION
  Report Type: Spontaneous
  Country: FR (occurrence: None)
  Receive Date: 20140623
  Receipt Date: 20140623
  Transmission Date: 20141212
  Serious: Yes (Hospitalization)
  Sender: FDA-Public Use
  Company Number: FR-016010

PATIENT
  Age: 63 Year
  Sex: Male

DRUGS (2)
  1. MINIRIN [Suspect]
     Indication: PRODUCT USED FOR UNKNOWN INDICATION
     Dates: end: 20140507
  2. VESICARE [Concomitant]

REACTIONS (5)
  - Psychomotor retardation [None]
  - Malaise [None]
  - Hypertension [None]
  - Hyponatraemia [None]
  - Blood creatinine increased [None]
